FAERS Safety Report 10004672 (Version 3)
Quarter: 2015Q1

REPORT INFORMATION
  Report Type: Report from Study
  Country: US (occurrence: US)
  Receive Date: 20140312
  Receipt Date: 20150130
  Transmission Date: 20150720
  Serious: Yes (Other)
  Sender: FDA-Public Use
  Company Number: US-ALEXION-A200800605

PATIENT

DRUGS (2)
  1. DEFEROXAMINE [Concomitant]
     Active Substance: DEFEROXAMINE\DEFEROXAMINE MESYLATE
     Indication: PRODUCT USED FOR UNKNOWN INDICATION
     Dosage: UNK, QW
     Route: 065
  2. SOLIRIS [Suspect]
     Active Substance: ECULIZUMAB
     Indication: PAROXYSMAL NOCTURNAL HAEMOGLOBINURIA
     Dosage: 1500 MG, Q2W
     Route: 042
     Dates: start: 200705

REACTIONS (5)
  - Platelet count decreased [Unknown]
  - Dyspnoea [Unknown]
  - Haemolysis [Not Recovered/Not Resolved]
  - Haemoglobin decreased [Unknown]
  - Nasopharyngitis [Unknown]
